FAERS Safety Report 5663592-0 (Version None)
Quarter: 2008Q1

REPORT INFORMATION
  Report Type: 
  Country: None (occurrence: None)
  Receive Date: 20080313
  Receipt Date: 20080306
  Transmission Date: 20080703
  Serious: Yes (Life-Threatening, Disabling)
  Sender: FDA-Public Use
  Company Number: US-BAXTER-2008BH002025

PATIENT
  Age: 47 Year
  Sex: Female

DRUGS (1)
  1. HEPARIN SODIUM [Suspect]
     Indication: PULMONARY EMBOLISM
     Dosage: DOSE UNIT:UNKNOWN
     Route: 042

REACTIONS (7)
  - ABDOMINAL PAIN UPPER [None]
  - ACTIVITIES OF DAILY LIVING IMPAIRED [None]
  - AMNESIA [None]
  - BLOOD PRESSURE DECREASED [None]
  - CHEST PAIN [None]
  - HEART RATE INCREASED [None]
  - NAUSEA [None]
